FAERS Safety Report 10209981 (Version 1)
Quarter: 2014Q2

REPORT INFORMATION
  Report Type: Spontaneous
  Country: US (occurrence: US)
  Receive Date: 20140602
  Receipt Date: 20140602
  Transmission Date: 20141212
  Serious: Yes (Other)
  Sender: FDA-Public Use
  Company Number: US-RANBAXY-2014US-81730

PATIENT
  Sex: Female

DRUGS (4)
  1. LORAZEPAM [Suspect]
     Indication: PANIC ATTACK
     Dosage: 1 MG, QD , AT NIGHT
     Route: 065
  2. LORAZEPAM [Suspect]
     Indication: ANXIETY
  3. LORAZEPAM [Suspect]
     Indication: PANIC ATTACK
     Dosage: 0.5 MG, DAILY
     Route: 065
  4. LORAZEPAM [Suspect]
     Indication: ANXIETY

REACTIONS (3)
  - Drug dependence [Unknown]
  - Panic attack [Unknown]
  - Tremor [Unknown]
